FAERS Safety Report 21633588 (Version 1)
Quarter: 2022Q4

REPORT INFORMATION
  Report Type: Spontaneous
  Country: US (occurrence: US)
  Receive Date: 20221123
  Receipt Date: 20221123
  Transmission Date: 20230113
  Serious: Yes (Other)
  Sender: FDA-Public Use
  Company Number: US-BRISTOL-MYERS SQUIBB COMPANY-2022-138674

PATIENT
  Age: 68 Year
  Sex: Male

DRUGS (3)
  1. ONUREG [Suspect]
     Active Substance: AZACITIDINE
     Indication: Acute myeloid leukaemia
     Dosage: QD ON DAYS 1-14 OF EACH 28-DAYTREATMENT CYCLE
     Route: 048
     Dates: start: 202102
  2. ONUREG [Suspect]
     Active Substance: AZACITIDINE
     Dosage: QD X 14DAYS/CYCLE
     Route: 048
     Dates: start: 202102
  3. ONUREG [Suspect]
     Active Substance: AZACITIDINE
     Dosage: 200 MG QD X 7 DAYS/CYCLE
     Route: 048
     Dates: start: 20221020

REACTIONS (3)
  - Thrombocytopenia [Unknown]
  - Neutropenia [Unknown]
  - Cytopenia [Recovering/Resolving]

NARRATIVE: CASE EVENT DATE: 20210201
